FAERS Safety Report 10601283 (Version 2)
Quarter: 2014Q4

REPORT INFORMATION
  Report Type: Spontaneous
  Country: JP (occurrence: JP)
  Receive Date: 20141124
  Receipt Date: 20141124
  Transmission Date: 20150529
  Serious: Yes (Death, Other)
  Sender: FDA-Public Use
  Company Number: PHHY2012JP132673

PATIENT
  Age: 76 Year
  Sex: Female

DRUGS (2)
  1. NEXAVAR [Concomitant]
     Active Substance: SORAFENIB
     Indication: PRODUCT USED FOR UNKNOWN INDICATION
     Route: 065
  2. AFINITOR [Suspect]
     Active Substance: EVEROLIMUS
     Indication: RENAL CELL CARCINOMA
     Dosage: 10 MG, QD
     Route: 048
     Dates: start: 20120412, end: 20120607

REACTIONS (6)
  - Pulmonary mass [Unknown]
  - Mouth ulceration [Unknown]
  - Death [Fatal]
  - Dyspnoea [Unknown]
  - Pyrexia [Unknown]
  - Interstitial lung disease [Recovering/Resolving]

NARRATIVE: CASE EVENT DATE: 20120607
